FAERS Safety Report 8512627-6 (Version None)
Quarter: 2012Q3

REPORT INFORMATION
  Report Type: 
  Country: None (occurrence: None)
  Receive Date: 20120716
  Receipt Date: 20120704
  Transmission Date: 20120928
  Serious: Yes (Death, Hospitalization)
  Sender: FDA-Public Use
  Company Number: DK-NAPPMUNDI-GBR-2012-0010936

PATIENT
  Sex: Male

DRUGS (4)
  1. MOVICOL                            /01625101/ [Concomitant]
  2. OXYCONTIN [Suspect]
     Indication: PAIN
  3. TOILAX [Concomitant]
  4. OXYCODONE HCL [Suspect]
     Indication: PAIN

REACTIONS (9)
  - RENAL IMPAIRMENT [None]
  - ACUTE RESPIRATORY DISTRESS SYNDROME [None]
  - INFECTION [None]
  - HYPOTENSION [None]
  - ABDOMINAL PAIN [None]
  - WEIGHT DECREASED [None]
  - FLUID RETENTION [None]
  - CONSTIPATION [None]
  - ILEUS PARALYTIC [None]
